FAERS Safety Report 19032362 (Version 1)
Quarter: 2021Q1

REPORT INFORMATION
  Report Type: Spontaneous
  Country: US (occurrence: US)
  Receive Date: 20210319
  Receipt Date: 20210319
  Transmission Date: 20210420
  Serious: Yes (Death)
  Sender: FDA-Public Use
  Company Number: US-TEVA-2021-US-1888837

PATIENT
  Age: 58 Year
  Sex: Female

DRUGS (6)
  1. METHOTREXATE. [Concomitant]
     Active Substance: METHOTREXATE
     Dosage: 8 TABLETS EVERY SEVEN DAYS
  2. FOLIC ACID. [Concomitant]
     Active Substance: FOLIC ACID
     Dosage: DAILY
  3. ALPRAZOLAM TEVA [Suspect]
     Active Substance: ALPRAZOLAM
     Route: 065
  4. CITALOPRAM FOREST [Concomitant]
  5. CITALOPRAM FOREST [Concomitant]
  6. CARVEDILOL. [Concomitant]
     Active Substance: CARVEDILOL

REACTIONS (2)
  - Completed suicide [Fatal]
  - Cognitive disorder [Unknown]
